FAERS Safety Report 4385523-6 (Version None)
Quarter: 2004Q2

REPORT INFORMATION
  Report Type: 
  Country: None (occurrence: None)
  Receive Date: 20040628
  Receipt Date: 20040621
  Transmission Date: 20050107
  Serious: Yes (Life-Threatening, Hospitalization)
  Sender: FDA-Public Use
  Company Number: FR-BRISTOL-MYERS SQUIBB COMPANY-12623070

PATIENT
  Age: 60 Year
  Sex: Male
  Weight: 100 kg

DRUGS (6)
  1. CARDIOLITE [Suspect]
     Indication: SCAN PARATHYROID
     Route: 042
     Dates: start: 20040408, end: 20040408
  2. EUCALCIC [Concomitant]
     Dates: start: 20040330
  3. FUROSEMIDE [Concomitant]
  4. APROVEL [Concomitant]
  5. EUPRESSYL [Concomitant]
  6. PHENOBARBITAL TAB [Concomitant]

REACTIONS (5)
  - ACIDOSIS [None]
  - HYPONATRAEMIA [None]
  - OEDEMA [None]
  - PARAESTHESIA [None]
  - RENAL FAILURE ACUTE [None]
